FAERS Safety Report 7870950-2 (Version None)
Quarter: 2011Q4

REPORT INFORMATION
  Report Type: 
  Country: None (occurrence: None)
  Receive Date: 20111029
  Receipt Date: 20110221
  Transmission Date: 20120403
  Serious: No
  Sender: FDA-Public Use
  Company Number: US-AMGEN-USASP2011009971

PATIENT
  Age: 59 Year
  Sex: Female

DRUGS (2)
  1. ENBREL [Suspect]
     Dosage: 50 MG, QWK
  2. ENBREL [Suspect]
     Indication: RHEUMATOID ARTHRITIS
     Dosage: 25 MG, 2 TIMES/WK
     Dates: start: 20040201, end: 20110206

REACTIONS (6)
  - PAIN [None]
  - DRUG INEFFECTIVE [None]
  - FALL [None]
  - NASOPHARYNGITIS [None]
  - FATIGUE [None]
  - HAND FRACTURE [None]
